FAERS Safety Report 19354935 (Version 2)
Quarter: 2021Q4

REPORT INFORMATION
  Report Type: Report from Study
  Country: IL (occurrence: IL)
  Receive Date: 20210602
  Receipt Date: 20211221
  Transmission Date: 20220303
  Serious: Yes (Hospitalization)
  Sender: FDA-Public Use
  Company Number: IL-ABBVIE-21K-082-3924757-00

PATIENT
  Sex: Female

DRUGS (1)
  1. HUMIRA [Suspect]
     Active Substance: ADALIMUMAB
     Indication: Crohn^s disease
     Route: 058
     Dates: start: 20210428, end: 202107

REACTIONS (7)
  - Selective abortion [Unknown]
  - Product dispensing error [Not Recovered/Not Resolved]
  - Maternal exposure during pregnancy [Unknown]
  - Oropharyngeal pain [Not Recovered/Not Resolved]
  - Gingivitis [Not Recovered/Not Resolved]
  - Illness [Unknown]
  - Live birth [Unknown]

NARRATIVE: CASE EVENT DATE: 20210101
